FAERS Safety Report 8099246-3 (Version None)
Quarter: 2012Q1

REPORT INFORMATION
  Report Type: 
  Country: None (occurrence: None)
  Receive Date: 20120129
  Receipt Date: 20111005
  Transmission Date: 20120608
  Serious: No
  Sender: FDA-Public Use
  Company Number: US-ABBOTT-11P-163-0861418-00

PATIENT
  Age: 29 Year
  Sex: Male

DRUGS (2)
  1. VERAMIST NASAL SPRAY [Concomitant]
     Indication: SEASONAL ALLERGY
     Route: 045
  2. HUMIRA [Suspect]
     Indication: PSORIASIS
     Dates: start: 20110101

REACTIONS (2)
  - ABDOMINAL PAIN [None]
  - SEMEN DISCOLOURATION [None]
